FAERS Safety Report 9418684 (Version 2)
Quarter: 2013Q3

REPORT INFORMATION
  Report Type: Spontaneous
  Country: DE (occurrence: DE)
  Receive Date: 20130725
  Receipt Date: 20130808
  Transmission Date: 20140515
  Serious: Yes (Other)
  Sender: FDA-Public Use
  Company Number: DE-AMGEN-DEUSP2013050876

PATIENT
  Age: 83 Year
  Sex: Male
  Weight: 99 kg

DRUGS (9)
  1. PROLIA [Suspect]
     Indication: OSTEOPOROTIC FRACTURE
     Dosage: 60 MG, Q6MO
     Route: 058
     Dates: start: 201108
  2. PROLIA [Suspect]
     Indication: PATHOLOGICAL FRACTURE
  3. PROLIA [Suspect]
     Indication: PROSTATE CANCER
  4. PROLIA [Suspect]
     Indication: RENAL FAILURE
  5. CARVEDIOL [Concomitant]
     Dosage: 12.5 MG, BID
     Route: 048
  6. DELIX                              /00885601/ [Concomitant]
     Dosage: 5 MG, 0.5 IN THE MORNING
     Route: 048
  7. SIMVAHEXAL [Concomitant]
     Dosage: 20 MG, IN THE EVENING
     Route: 048
  8. TOREM                              /01036501/ [Concomitant]
     Dosage: 10 MG, 1 DOSE IN THE MORNING AND 0.5 DOSE IN THE AFTERNOON
     Route: 048
  9. GLUCOBAY [Concomitant]
     Dosage: 50 MG, TID
     Route: 048

REACTIONS (3)
  - Lumbar vertebral fracture [Unknown]
  - Drug ineffective [Unknown]
  - Musculoskeletal discomfort [Unknown]
